FAERS Safety Report 20993520 (Version 1)
Quarter: 2022Q2

REPORT INFORMATION
  Report Type: Spontaneous
  Country: US (occurrence: None)
  Receive Date: 20220621
  Receipt Date: 20220621
  Transmission Date: 20220721
  Serious: Yes (Hospitalization)
  Sender: FDA-Public Use
  Company Number: None

PATIENT
  Age: 47 Year
  Sex: Female
  Weight: 74 kg

DRUGS (2)
  1. PHENTERMINE [Suspect]
     Active Substance: PHENTERMINE
     Indication: Weight decreased
     Dosage: FREQUENCY : DAILY;?
     Route: 048
     Dates: start: 20220523, end: 20220605
  2. CIPROFLOXACIN [Concomitant]
     Active Substance: CIPROFLOXACIN
     Dates: start: 20220526, end: 20220602

REACTIONS (1)
  - Atrial fibrillation [None]

NARRATIVE: CASE EVENT DATE: 20220605
